FAERS Safety Report 12677874 (Version 2)
Quarter: 2016Q4

REPORT INFORMATION
  Report Type: Spontaneous
  Country: US (occurrence: US)
  Receive Date: 20160823
  Receipt Date: 20161018
  Transmission Date: 20170207
  Serious: Yes (Other)
  Sender: FDA-Public Use
  Company Number: US-GLAXOSMITHKLINE-US2016121820

PATIENT
  Age: 63 Year
  Sex: Female

DRUGS (1)
  1. SENSODYNE REPAIR AND PROTECT [Suspect]
     Active Substance: STANNOUS FLUORIDE
     Indication: DENTAL CLEANING
     Dosage: UNK
     Dates: start: 20160818, end: 20160818

REACTIONS (2)
  - Accidental device ingestion [Unknown]
  - Accidental exposure to product [Unknown]
